FAERS Safety Report 25592020 (Version 1)
Quarter: 2025Q3

REPORT INFORMATION
  Report Type: Spontaneous
  Country: US (occurrence: US)
  Receive Date: 20250722
  Receipt Date: 20250722
  Transmission Date: 20251020
  Serious: Yes (Other)
  Sender: BAYER HEALTHCARE LLC
  Company Number: US-BAYER-2025A096976

PATIENT

DRUGS (1)
  1. ASPIRIN [Suspect]
     Active Substance: ASPIRIN
     Indication: Prophylaxis

REACTIONS (1)
  - Haemorrhage [None]
